FAERS Safety Report 18524987 (Version 1)
Quarter: 2020Q4

REPORT INFORMATION
  Report Type: Spontaneous
  Country: CN (occurrence: CN)
  Receive Date: 20201119
  Receipt Date: 20201119
  Transmission Date: 20210114
  Serious: Yes (Hospitalization, Other)
  Sender: FDA-Public Use
  Company Number: CN-PFIZER INC-2020452326

PATIENT
  Age: 18 Year
  Sex: Male
  Weight: 52 kg

DRUGS (3)
  1. METHOTREXATE. [Suspect]
     Active Substance: METHOTREXATE
     Indication: NEOPLASM
     Dosage: 6 G, 1X/DAY
     Route: 041
     Dates: start: 20201018, end: 20201018
  2. CYTOSAR [Suspect]
     Active Substance: CYTARABINE
     Indication: NEOPLASM
     Dosage: 1.7 G, 2X/DAY
     Route: 041
     Dates: start: 20201018, end: 20201018
  3. BORTEZOMIB. [Suspect]
     Active Substance: BORTEZOMIB
     Indication: NEOPLASM
     Dosage: 2.2 MG, 1X/DAY
     Route: 041
     Dates: start: 20201018, end: 20201018

REACTIONS (8)
  - Myelosuppression [Recovering/Resolving]
  - Disseminated intravascular coagulation [Recovering/Resolving]
  - Pneumonia [Recovering/Resolving]
  - Cardiac failure [Recovering/Resolving]
  - Hypothyroidism [Recovering/Resolving]
  - Venous thrombosis limb [Recovering/Resolving]
  - Electrolyte imbalance [Recovering/Resolving]
  - Hypopituitarism [Recovering/Resolving]

NARRATIVE: CASE EVENT DATE: 20201101
